FAERS Safety Report 21263930 (Version 1)
Quarter: 2022Q3

REPORT INFORMATION
  Report Type: Spontaneous
  Country: JP (occurrence: JP)
  Receive Date: 20220829
  Receipt Date: 20220829
  Transmission Date: 20221027
  Serious: Yes (Hospitalization)
  Sender: FDA-Public Use
  Company Number: JP-TAKEDA-2022TJP070978

PATIENT

DRUGS (1)
  1. ENTYVIO [Suspect]
     Active Substance: VEDOLIZUMAB
     Indication: Colitis ulcerative
     Dosage: 300 MILLIGRAM
     Route: 041

REACTIONS (3)
  - Gastroenteritis bacterial [Recovered/Resolved]
  - Product administered to patient of inappropriate age [Unknown]
  - Off label use [Unknown]

NARRATIVE: CASE EVENT DATE: 20220801
